FAERS Safety Report 7465072-9 (Version None)
Quarter: 2011Q2

REPORT INFORMATION
  Report Type: 
  Country: None (occurrence: None)
  Receive Date: 20110509
  Receipt Date: 20110426
  Transmission Date: 20111010
  Serious: Yes (Hospitalization, Other)
  Sender: FDA-Public Use
  Company Number: US-JNJFOC-20110400082

PATIENT
  Sex: Female
  Weight: 124.29 kg

DRUGS (15)
  1. OXYCODONE [Concomitant]
     Indication: PAIN
     Route: 048
  2. CYMBALTA [Concomitant]
     Indication: ANXIETY
     Route: 048
  3. REMICADE [Suspect]
     Indication: PSORIASIS
     Route: 042
  4. LEVOXYL [Concomitant]
     Indication: THYROID DISORDER
     Route: 048
  5. ABILIFY [Concomitant]
     Indication: ANXIETY
     Route: 048
  6. FENTANYL [Suspect]
     Indication: POST-TRAUMATIC PAIN
     Route: 062
  7. STELARA [Concomitant]
     Indication: PSORIASIS
     Route: 058
  8. CYMBALTA [Concomitant]
     Indication: POST CONCUSSION SYNDROME
     Route: 048
  9. ABILIFY [Concomitant]
     Indication: POST CONCUSSION SYNDROME
     Route: 048
  10. TOPAMAX [Concomitant]
     Indication: POST CONCUSSION SYNDROME
     Route: 048
  11. XANAX [Concomitant]
     Indication: ANXIETY
     Route: 048
  12. TOPAMAX [Concomitant]
     Indication: ANXIETY
     Route: 048
  13. TOPAMAX [Concomitant]
     Indication: DEPRESSION
     Route: 048
  14. ABILIFY [Concomitant]
     Indication: DEPRESSION
     Route: 048
  15. CYMBALTA [Concomitant]
     Indication: DEPRESSION
     Route: 048

REACTIONS (4)
  - ERYTHEMA [None]
  - HYPOPNOEA [None]
  - INFUSION RELATED REACTION [None]
  - PANCREATITIS [None]
